FAERS Safety Report 6454065-6 (Version None)
Quarter: 2009Q4

REPORT INFORMATION
  Report Type: 
  Country: None (occurrence: None)
  Receive Date: 20091124
  Receipt Date: 20091113
  Transmission Date: 20100525
  Serious: Yes (Hospitalization)
  Sender: FDA-Public Use
  Company Number: B0604157A

PATIENT
  Sex: Male

DRUGS (10)
  1. ALKERAN [Suspect]
     Route: 042
     Dates: start: 20040101, end: 20070501
  2. ZOMETA [Suspect]
     Route: 042
     Dates: start: 20040101, end: 20050601
  3. LYTOS [Suspect]
     Route: 048
     Dates: start: 20060401, end: 20080801
  4. THALIDOMIDE [Suspect]
     Route: 048
     Dates: start: 20061201, end: 20090101
  5. DEXAMETHASONE [Suspect]
     Route: 042
     Dates: start: 20080301, end: 20090101
  6. CORTANCYL [Suspect]
     Route: 048
     Dates: start: 20040101, end: 20061001
  7. BISOPROLOL FUMARATE [Suspect]
     Indication: ATRIAL FIBRILLATION
     Route: 048
     Dates: start: 20040101, end: 20090101
  8. PREVISCAN [Suspect]
     Indication: ATRIAL FIBRILLATION
     Route: 048
     Dates: start: 20040101, end: 20090101
  9. CORDARONE [Suspect]
     Indication: ATRIAL FIBRILLATION
     Route: 048
     Dates: start: 20040101, end: 20090101
  10. EPOGEN [Concomitant]
     Route: 042
     Dates: start: 20040101, end: 20080801

REACTIONS (1)
  - OSTEONECROSIS [None]
